FAERS Safety Report 14659484 (Version 2)
Quarter: 2018Q2

REPORT INFORMATION
  Report Type: Spontaneous
  Country: IL (occurrence: IL)
  Receive Date: 20180320
  Receipt Date: 20180402
  Transmission Date: 20180711
  Serious: Yes (Hospitalization)
  Sender: FDA-Public Use
  Company Number: IL-ROCHE-2092600

PATIENT
  Sex: Female

DRUGS (3)
  1. TECENTRIQ [Suspect]
     Active Substance: ATEZOLIZUMAB
     Indication: COLON CANCER METASTATIC
     Route: 065
     Dates: start: 20180118, end: 20180215
  2. PREDNISONE. [Concomitant]
     Active Substance: PREDNISONE
  3. COTELLIC [Suspect]
     Active Substance: COBIMETINIB
     Indication: COLON CANCER METASTATIC
     Route: 065
     Dates: start: 20180118, end: 20180215

REACTIONS (2)
  - Haemoglobin decreased [Recovered/Resolved]
  - Renal impairment [Recovered/Resolved]
